FAERS Safety Report 25634930 (Version 5)
Quarter: 2025Q3

REPORT INFORMATION
  Report Type: Spontaneous
  Country: JP (occurrence: JP)
  Receive Date: 20250801
  Receipt Date: 20250925
  Transmission Date: 20251021
  Serious: Yes (Hospitalization, Other)
  Sender: PFIZER
  Company Number: JP-GENMAB-2025-01780

PATIENT
  Age: 51 Year
  Sex: Female
  Weight: 71.6 kg

DRUGS (12)
  1. TIVDAK [Suspect]
     Active Substance: TISOTUMAB VEDOTIN-TFTV
     Indication: Cervix carcinoma recurrent
     Dosage: 138 MILLIGRAM, 1Q3W THE FIRST COURSE
     Route: 042
     Dates: start: 20250604, end: 20250604
  2. TIVDAK [Suspect]
     Active Substance: TISOTUMAB VEDOTIN-TFTV
     Route: 042
     Dates: start: 20250828, end: 20250828
  3. KEYTRUDA [Suspect]
     Active Substance: PEMBROLIZUMAB
     Indication: Cervix carcinoma
     Dates: end: 2025
  4. MIROGABALIN BESYLATE [Concomitant]
     Active Substance: MIROGABALIN BESYLATE
  5. SYMPROIC [Concomitant]
     Active Substance: NALDEMEDINE TOSYLATE
  6. OXYCODONE HYDROCHLORIDE [Concomitant]
     Active Substance: OXYCODONE HYDROCHLORIDE
  7. ACETAMINOPHEN [Concomitant]
     Active Substance: ACETAMINOPHEN
  8. PRIMPERAN [Concomitant]
     Active Substance: METOCLOPRAMIDE HYDROCHLORIDE
     Route: 048
  9. FAMOTIDINE [Concomitant]
     Active Substance: FAMOTIDINE
  10. RISPERIDONE [Concomitant]
     Active Substance: RISPERIDONE
  11. FEXOFENADINE HYDROCHLORIDE [Concomitant]
     Active Substance: FEXOFENADINE HYDROCHLORIDE
  12. CYANOCOBALAMIN\FOLIC ACID\PYRIDOXINE HYDROCHLORIDE [Concomitant]
     Active Substance: CYANOCOBALAMIN\FOLIC ACID\PYRIDOXINE HYDROCHLORIDE

REACTIONS (15)
  - Altered state of consciousness [Recovered/Resolved]
  - Second primary malignancy [Recovered/Resolved]
  - Brain neoplasm [Recovered/Resolved]
  - Hyperglycaemia [Recovered/Resolved]
  - Nausea [Recovered/Resolved]
  - Cytokine release syndrome [Recovered/Resolved]
  - Blood pressure decreased [Recovered/Resolved]
  - Anaemia [Recovering/Resolving]
  - Hypovitaminosis [Recovered/Resolved]
  - Genital haemorrhage [Recovered/Resolved]
  - Conjunctival haemorrhage [Recovered/Resolved]
  - Malaise [Unknown]
  - Pyrexia [Unknown]
  - Vomiting [Recovered/Resolved]
  - Oxygen saturation decreased [Unknown]

NARRATIVE: CASE EVENT DATE: 20250101
